FAERS Safety Report 19719895 (Version 1)
Quarter: 2021Q3

REPORT INFORMATION
  Report Type: Spontaneous
  Country: US (occurrence: US)
  Receive Date: 20210819
  Receipt Date: 20210819
  Transmission Date: 20211014
  Serious: No
  Sender: FDA-Public Use
  Company Number: None

PATIENT
  Age: 47 Year
  Sex: Male

DRUGS (1)
  1. ARMODAFINIL (ARMODAFINIL 150MG TAB) [Suspect]
     Active Substance: ARMODAFINIL
     Indication: NARCOLEPSY
     Route: 048
     Dates: start: 20210406, end: 20210430

REACTIONS (2)
  - Confusional state [None]
  - Palpitations [None]

NARRATIVE: CASE EVENT DATE: 20210430
